FAERS Safety Report 8989027 (Version 1)
Quarter: 2012Q4

REPORT INFORMATION
  Report Type: Spontaneous
  Country: CN (occurrence: None)
  Receive Date: 20121218
  Receipt Date: 20121218
  Transmission Date: 20130627
  Serious: Yes (Other)
  Sender: FDA-Public Use
  Company Number: 2012/180

PATIENT
  Age: 10 Year
  Sex: Male

DRUGS (2)
  1. LEVETIRACETAM [Suspect]
     Indication: SEIZURE
  2. LEVETIRACETAM [Suspect]
     Indication: SEIZURE

REACTIONS (1)
  - Convulsion [None]
